FAERS Safety Report 7065769-9 (Version None)
Quarter: 2010Q4

REPORT INFORMATION
  Report Type: 
  Country: None (occurrence: None)
  Receive Date: 20101027
  Receipt Date: 20101018
  Transmission Date: 20110411
  Serious: Yes (Hospitalization)
  Sender: FDA-Public Use
  Company Number: IT-PURDUE-GBR-2010-0006703

PATIENT
  Age: 70 Year
  Sex: Female

DRUGS (6)
  1. OXYCODONE HCL [Suspect]
     Indication: PAIN
     Dosage: 5 MG, DAILY
     Dates: start: 20090609
  2. ALPRAZOLAM [Suspect]
     Dosage: 25 MG, DAILY
     Dates: start: 20100503, end: 20100607
  3. OMEPRAZOLE [Suspect]
     Dosage: 20 MG, DAILY
     Dates: start: 20070601
  4. KARVEZIDE [Concomitant]
     Indication: HYPERTENSION
     Dosage: 300 MG, DAILY
     Dates: start: 20000501
  5. LYRICA [Concomitant]
     Indication: PAIN
     Dosage: UNK
     Dates: start: 20090501
  6. LAMICTAL [Concomitant]
     Dosage: 100 MG, DAILY
     Dates: start: 20091201

REACTIONS (6)
  - ASTHENIA [None]
  - ATAXIA [None]
  - DIZZINESS [None]
  - HYPOKINESIA [None]
  - LETHARGY [None]
  - RESPIRATORY DEPRESSION [None]
